FAERS Safety Report 9452033 (Version 1)
Quarter: 2013Q3

REPORT INFORMATION
  Report Type: Spontaneous
  Country: US (occurrence: US)
  Receive Date: 20130812
  Receipt Date: 20130812
  Transmission Date: 20140515
  Serious: No
  Sender: FDA-Public Use
  Company Number: US-BIOGENIDEC-2013BI073204

PATIENT
  Age: 49 Year
  Sex: Female

DRUGS (2)
  1. TYSABRI [Suspect]
     Indication: MULTIPLE SCLEROSIS
     Route: 042
     Dates: start: 20091104
  2. AMPYRA [Concomitant]
     Indication: GAIT DISTURBANCE
     Route: 048

REACTIONS (9)
  - Feeling abnormal [Recovered/Resolved with Sequelae]
  - Insomnia [Not Recovered/Not Resolved]
  - Ear infection [Recovered/Resolved]
  - Gait disturbance [Recovered/Resolved with Sequelae]
  - Fatigue [Recovered/Resolved with Sequelae]
  - Urinary tract infection [Recovered/Resolved with Sequelae]
  - Herpes zoster [Recovered/Resolved]
  - Rash [Recovered/Resolved with Sequelae]
  - Flushing [Recovered/Resolved with Sequelae]
